FAERS Safety Report 4783551-X (Version None)
Quarter: 2005Q3

REPORT INFORMATION
  Report Type: 
  Country: None (occurrence: None)
  Receive Date: 20050928
  Receipt Date: 20050921
  Transmission Date: 20060218
  Serious: Yes (Other)
  Sender: FDA-Public Use
  Company Number: 2005-03578

PATIENT
  Age: 42 Year
  Sex: Female

DRUGS (4)
  1. HYDROCHLOROTHIAZIDE [Suspect]
     Indication: HYPERTENSION
     Dosage: ORAL
     Route: 048
  2. IRBESARTAN [Suspect]
     Indication: HYPERTENSION
  3. PANTOPRAZOLE SODIUM [Concomitant]
  4. GABAPENTIN [Concomitant]

REACTIONS (1)
  - ANGLE CLOSURE GLAUCOMA [None]
